FAERS Safety Report 4699811-7 (Version None)
Quarter: 2005Q2

REPORT INFORMATION
  Report Type: 
  Country: None (occurrence: None)
  Receive Date: 20050623
  Receipt Date: 20050610
  Transmission Date: 20051028
  Serious: Yes (Other)
  Sender: FDA-Public Use
  Company Number: 2005087970

PATIENT
  Sex: Female

DRUGS (2)
  1. SOMAVERT [Suspect]
     Indication: ACROMEGALY
     Dosage: SEE IMAGE, SUBCUTANEOUS
     Route: 058
     Dates: end: 20050602
  2. SOMAVERT [Suspect]
     Indication: ACROMEGALY
     Dosage: SEE IMAGE, SUBCUTANEOUS
     Route: 058
     Dates: start: 20030911

REACTIONS (1)
  - PITUITARY TUMOUR [None]
